FAERS Safety Report 20016503 (Version 1)
Quarter: 2021Q4

REPORT INFORMATION
  Report Type: Spontaneous
  Country: US (occurrence: None)
  Receive Date: 20211104
  Receipt Date: 20211104
  Transmission Date: 20220303
  Serious: Yes (Hospitalization)
  Sender: FDA-Public Use
  Company Number: None

PATIENT
  Age: 83 Year
  Sex: Female

DRUGS (1)
  1. CINACALCET HYDROCHLORIDE [Suspect]
     Active Substance: CINACALCET HYDROCHLORIDE
     Indication: Hyperparathyroidism primary
     Dosage: FREQUENCY : DAILY;?
     Route: 048
     Dates: start: 20210909

REACTIONS (6)
  - Cerebrovascular accident [None]
  - Chronic kidney disease [None]
  - Essential hypertension [None]
  - Hyperlipidaemia [None]
  - Type 2 diabetes mellitus [None]
  - Osteoarthritis [None]

NARRATIVE: CASE EVENT DATE: 20211102
